FAERS Safety Report 24574351 (Version 1)
Quarter: 2024Q4

REPORT INFORMATION
  Report Type: Spontaneous
  Country: US (occurrence: US)
  Receive Date: 20241104
  Receipt Date: 20241104
  Transmission Date: 20250115
  Serious: No
  Sender: ROCHE
  Company Number: US-ROCHE-3556297

PATIENT
  Age: 64 Year
  Sex: Female
  Weight: 88.45 kg

DRUGS (2)
  1. ACTEMRA [Suspect]
     Active Substance: TOCILIZUMAB
     Indication: Systemic scleroderma
     Route: 058
     Dates: start: 20240429
  2. AMLODIPINE [Concomitant]
     Active Substance: AMLODIPINE BESYLATE
     Indication: Scleroderma

REACTIONS (9)
  - Accidental exposure to product [Unknown]
  - No adverse event [Unknown]
  - Wrong technique in device usage process [Unknown]
  - Product storage error [Unknown]
  - Device malfunction [Unknown]
  - Circumstance or information capable of leading to device use error [Unknown]
  - Circumstance or information capable of leading to device use error [Unknown]
  - Wrong technique in device usage process [Unknown]
  - Product communication issue [Unknown]
